FAERS Safety Report 23060810 (Version 2)
Quarter: 2023Q4

REPORT INFORMATION
  Report Type: Spontaneous
  Country: US (occurrence: US)
  Receive Date: 20231012
  Receipt Date: 20231027
  Transmission Date: 20240110
  Serious: Yes (Other)
  Sender: FDA-Public Use
  Company Number: US-OTSUKA PHARMACEUTICAL NETHERLANDS B.V.-AUR-004125

PATIENT
  Sex: Female

DRUGS (2)
  1. LUPKYNIS [Suspect]
     Active Substance: VOCLOSPORIN
     Indication: Lupus nephritis
     Dosage: 15.8 MILLIGRAM, BID
     Route: 048
     Dates: start: 20230114
  2. LUPKYNIS [Suspect]
     Active Substance: VOCLOSPORIN
     Dosage: 7.9 MILLIGRAM, BID
     Route: 048

REACTIONS (9)
  - Anaemia [Unknown]
  - Peptic ulcer [Unknown]
  - Oesophageal discomfort [Unknown]
  - Migraine [Unknown]
  - Increased appetite [Unknown]
  - Asthenia [Unknown]
  - Abdominal pain upper [Unknown]
  - COVID-19 [Unknown]
  - Product packaging difficult to open [Unknown]
